FAERS Safety Report 7830163-7 (Version None)
Quarter: 2011Q4

REPORT INFORMATION
  Report Type: 
  Country: None (occurrence: None)
  Receive Date: 20111021
  Receipt Date: 20111012
  Transmission Date: 20120403
  Serious: Yes (Other)
  Sender: FDA-Public Use
  Company Number: GB-JNJFOC-20111006642

PATIENT
  Age: 42 Year
  Sex: Male

DRUGS (3)
  1. RISPERDAL [Concomitant]
     Indication: SCHIZOPHRENIA, PARANOID TYPE
     Route: 048
  2. PALIPERIDONE [Suspect]
     Route: 030
  3. PALIPERIDONE [Suspect]
     Indication: SCHIZOPHRENIA, PARANOID TYPE
     Route: 030

REACTIONS (2)
  - AGGRESSION [None]
  - DELUSION [None]
